FAERS Safety Report 6310774-0 (Version None)
Quarter: 2009Q3

REPORT INFORMATION
  Report Type: 
  Country: None (occurrence: None)
  Receive Date: 20090812
  Receipt Date: 20090807
  Transmission Date: 20100115
  Serious: Yes (Other)
  Sender: FDA-Public Use
  Company Number: A0801088A

PATIENT
  Age: 54 Year
  Sex: Female

DRUGS (1)
  1. ASPIRIN            (ASPIRIN) [Suspect]
     Indication: CARDIOVASCULAR EVENT PROPHYLAXIS
     Dosage: ORAL
     Route: 048
     Dates: end: 20090806

REACTIONS (2)
  - BLOOD URINE [None]
  - HAEMORRHAGE [None]
